FAERS Safety Report 8343351-0 (Version None)
Quarter: 2012Q1

REPORT INFORMATION
  Report Type: 
  Country: None (occurrence: None)
  Receive Date: 20120330
  Receipt Date: 20111103
  Transmission Date: 20120608
  Serious: Yes (Hospitalization)
  Sender: FDA-Public Use
  Company Number: PHEH2011US008666

PATIENT
  Sex: Female

DRUGS (1)
  1. EXELON [Suspect]
     Indication: ATTENTION DEFICIT/HYPERACTIVITY DISORDER
     Dosage: 9.5 MG, 1 PATCH A DAY, TRANSDERMAL
     Route: 062

REACTIONS (1)
  - ABDOMINAL PAIN [None]
